FAERS Safety Report 4353496-8 (Version None)
Quarter: 2004Q2

REPORT INFORMATION
  Report Type: 
  Country: None (occurrence: None)
  Receive Date: 20040430
  Receipt Date: 20040420
  Transmission Date: 20050107
  Serious: Yes (Hospitalization, Other)
  Sender: FDA-Public Use
  Company Number: 2003111631

PATIENT
  Age: 21 Year
  Sex: Female
  Weight: 86.637 kg

DRUGS (4)
  1. LITHIUM (LITHIUM) [Suspect]
     Indication: ILL-DEFINED DISORDER
  2. NARDIL [Suspect]
     Indication: BIPOLAR DISORDER
     Dosage: 45 MG (TID), ORAL
     Route: 048
     Dates: start: 19840101
  3. CETIRIZINE HCL [Concomitant]
  4. ALPRAZOLAM [Concomitant]

REACTIONS (11)
  - BASEDOW'S DISEASE [None]
  - BENIGN BREAST NEOPLASM [None]
  - BLOOD PRESSURE DECREASED [None]
  - CATARACT [None]
  - DRUG INEFFECTIVE [None]
  - EUPHORIC MOOD [None]
  - MANIA [None]
  - PHARMACEUTICAL PRODUCT COMPLAINT [None]
  - THYROID DISORDER [None]
  - TONSILLECTOMY [None]
  - VICTIM OF CRIME [None]
